FAERS Safety Report 9124935 (Version 7)
Quarter: 2016Q1

REPORT INFORMATION
  Report Type: Report from Study
  Country: BR (occurrence: BR)
  Receive Date: 20130227
  Receipt Date: 20160308
  Transmission Date: 20160526
  Serious: Yes (Hospitalization)
  Sender: FDA-Public Use
  Company Number: BR-ROCHE-1151372

PATIENT
  Sex: Female
  Weight: 70 kg

DRUGS (26)
  1. MABTHERA [Suspect]
     Active Substance: RITUXIMAB
     Route: 042
     Dates: start: 20100115
  2. MABTHERA [Suspect]
     Active Substance: RITUXIMAB
     Route: 042
     Dates: start: 20110215
  3. MABTHERA [Suspect]
     Active Substance: RITUXIMAB
     Route: 042
     Dates: start: 20111004
  4. MABTHERA [Suspect]
     Active Substance: RITUXIMAB
     Route: 042
     Dates: start: 20150119
  5. PREDNISONE. [Concomitant]
     Active Substance: PREDNISONE
     Route: 065
  6. DOMPERIDONE [Concomitant]
     Active Substance: DOMPERIDONE
     Route: 065
  7. PANTOPRAZOLE [Concomitant]
     Active Substance: PANTOPRAZOLE SODIUM
     Route: 065
  8. MABTHERA [Suspect]
     Active Substance: RITUXIMAB
     Route: 042
     Dates: start: 20110915
  9. MABTHERA [Suspect]
     Active Substance: RITUXIMAB
     Route: 042
     Dates: start: 20110930
  10. PREDNISONE. [Concomitant]
     Active Substance: PREDNISONE
     Dosage: 120 UP TO 180 MG
     Route: 065
  11. DOMPERIDONE [Concomitant]
     Active Substance: DOMPERIDONE
     Route: 065
  12. VALERIANE [Concomitant]
     Active Substance: VALERIAN
  13. MABTHERA [Suspect]
     Active Substance: RITUXIMAB
     Indication: RHEUMATOID ARTHRITIS
     Dosage: RECEIVED HER LATEST INFUSION ON 23/MAY/2012
     Route: 042
     Dates: start: 20100101
  14. MABTHERA [Suspect]
     Active Substance: RITUXIMAB
     Route: 042
     Dates: start: 20110302
  15. MABTHERA [Suspect]
     Active Substance: RITUXIMAB
     Route: 042
     Dates: start: 20100324
  16. PREDNISONE. [Concomitant]
     Active Substance: PREDNISONE
     Route: 065
  17. PANTOPRAZOLE [Concomitant]
     Active Substance: PANTOPRAZOLE SODIUM
     Route: 065
  18. MOTILIUM [Concomitant]
     Active Substance: DOMPERIDONE
     Indication: PHARYNGEAL DISORDER
  19. MABTHERA [Suspect]
     Active Substance: RITUXIMAB
     Route: 042
     Dates: start: 20120416
  20. MABTHERA [Suspect]
     Active Substance: RITUXIMAB
     Route: 042
     Dates: start: 20120505
  21. MABTHERA [Suspect]
     Active Substance: RITUXIMAB
     Route: 042
     Dates: start: 20120523
  22. MABTHERA [Suspect]
     Active Substance: RITUXIMAB
     Route: 042
     Dates: start: 20100824
  23. PREDNISONE. [Concomitant]
     Active Substance: PREDNISONE
     Route: 065
  24. ADALAT [Concomitant]
     Active Substance: NIFEDIPINE
     Indication: HYPERTENSION
     Route: 065
  25. ADALAT [Concomitant]
     Active Substance: NIFEDIPINE
     Route: 065
  26. FLUOXETINE [Concomitant]
     Active Substance: FLUOXETINE HYDROCHLORIDE
     Route: 065

REACTIONS (17)
  - Musculoskeletal stiffness [Unknown]
  - Exostosis [Unknown]
  - Depressive symptom [Unknown]
  - Pain [Recovering/Resolving]
  - Pollakiuria [Unknown]
  - Thirst [Unknown]
  - Rheumatoid arthritis [Unknown]
  - Immunodeficiency [Not Recovered/Not Resolved]
  - Rheumatoid arthritis [Unknown]
  - Rash macular [Recovering/Resolving]
  - Vascular rupture [Unknown]
  - Nodule [Unknown]
  - Hypothyroidism [Not Recovered/Not Resolved]
  - Sluggishness [Unknown]
  - Asthenia [Unknown]
  - Viral infection [Recovering/Resolving]
  - Influenza [Unknown]

NARRATIVE: CASE EVENT DATE: 2014
